FAERS Safety Report 6083260-3 (Version None)
Quarter: 2009Q1

REPORT INFORMATION
  Report Type: 
  Country: None (occurrence: None)
  Receive Date: 20090213
  Receipt Date: 20090213
  Transmission Date: 20090719
  Serious: No
  Sender: FDA-Public Use
  Company Number: None

PATIENT
  Sex: Male
  Weight: 120.2032 kg

DRUGS (1)
  1. EQUATE NIGHTTIME COLD FU RELIEF ALLERGAN [Suspect]
     Dosage: 2 TABLESPOONS PO
     Route: 048
     Dates: start: 20090131, end: 20090131

REACTIONS (4)
  - ERYTHEMA [None]
  - OROPHARYNGEAL PAIN [None]
  - PHARYNGEAL ERYTHEMA [None]
  - THROAT IRRITATION [None]
